FAERS Safety Report 4360177-3 (Version None)
Quarter: 2004Q2

REPORT INFORMATION
  Report Type: 
  Country: None (occurrence: None)
  Receive Date: 20040513
  Receipt Date: 20040429
  Transmission Date: 20050107
  Serious: No
  Sender: FDA-Public Use
  Company Number: 04P-163-0259550-00

PATIENT
  Age: 72 Year
  Sex: Female

DRUGS (5)
  1. WARFARIN SODIUM [Suspect]
     Indication: ATRIAL FIBRILLATION
  2. ALTEPLASE [Concomitant]
  3. HEPARIN [Concomitant]
  4. HEPARIN-FRACTION, SODIUM SALT [Concomitant]
  5. ARGATROBAN [Concomitant]

REACTIONS (8)
  - BREAST NECROSIS [None]
  - FOOT AMPUTATION [None]
  - GANGRENE [None]
  - LEG AMPUTATION [None]
  - MASTECTOMY [None]
  - PHLEBOTHROMBOSIS [None]
  - SKIN NECROSIS [None]
  - VENA CAVA FILTER INSERTION [None]
